FAERS Safety Report 24660083 (Version 1)
Quarter: 2024Q4

REPORT INFORMATION
  Report Type: Spontaneous
  Country: US (occurrence: US)
  Receive Date: 20241125
  Receipt Date: 20241125
  Transmission Date: 20250114
  Serious: No
  Sender: TAKEDA
  Company Number: US-TAKEDA-2024TUS117095

PATIENT
  Age: 63 Year
  Sex: Female

DRUGS (1)
  1. HYQVIA [Suspect]
     Active Substance: HUMAN IMMUNOGLOBULIN G\HYALURONIDASE (HUMAN RECOMBINANT)
     Indication: Immunodeficiency common variable
     Dosage: 5 GRAM, 1/WEEK
     Dates: start: 20241113

REACTIONS (3)
  - Pain [Unknown]
  - Hidradenitis [Unknown]
  - Nausea [Unknown]

NARRATIVE: CASE EVENT DATE: 20241113
